FAERS Safety Report 9450216 (Version 1)
Quarter: 2013Q3

REPORT INFORMATION
  Report Type: Spontaneous
  Country: BR (occurrence: BR)
  Receive Date: 20130809
  Receipt Date: 20130809
  Transmission Date: 20140515
  Serious: Yes (Hospitalization)
  Sender: FDA-Public Use
  Company Number: BR-SANOFI-AVENTIS-2013SA077716

PATIENT
  Sex: 0
  Weight: 1 kg

DRUGS (3)
  1. CLEXANE [Suspect]
     Indication: MATERNAL EXPOSURE TIMING UNSPECIFIED
     Route: 064
     Dates: start: 2011, end: 2011
  2. MULTIVITAMINS [Concomitant]
     Indication: FOETAL EXPOSURE TIMING UNSPECIFIED
  3. SYNTHROID [Concomitant]
     Indication: FOETAL EXPOSURE TIMING UNSPECIFIED

REACTIONS (4)
  - Premature baby [Unknown]
  - Foetal exposure during pregnancy [Unknown]
  - Low birth weight baby [Recovered/Resolved]
  - Body height decreased [Unknown]
